FAERS Safety Report 22658113 (Version 1)
Quarter: 2023Q2

REPORT INFORMATION
  Report Type: Spontaneous
  Country: GB (occurrence: GB)
  Receive Date: 20230630
  Receipt Date: 20230630
  Transmission Date: 20230722
  Serious: Yes (Other)
  Sender: FDA-Public Use
  Company Number: None

PATIENT
  Age: 83 Year
  Sex: Female
  Weight: 70 kg

DRUGS (4)
  1. DONEPEZIL HYDROCHLORIDE [Suspect]
     Active Substance: DONEPEZIL HYDROCHLORIDE
     Indication: Dementia Alzheimer^s type
     Dosage: 10MG; ;
     Dates: end: 202306
  2. FELODIPINE [Concomitant]
     Active Substance: FELODIPINE
     Indication: Hypertension
  3. FERROUS SULFATE [Concomitant]
     Active Substance: FERROUS SULFATE
     Indication: Adverse drug reaction
  4. OMEPRAZOLE [Concomitant]
     Active Substance: OMEPRAZOLE
     Indication: Gastrooesophageal reflux disease

REACTIONS (3)
  - Dyskinesia [Recovered/Resolved with Sequelae]
  - Nightmare [Recovered/Resolved]
  - Disorientation [Recovering/Resolving]

NARRATIVE: CASE EVENT DATE: 20230601
